FAERS Safety Report 7495526-0 (Version None)
Quarter: 2011Q2

REPORT INFORMATION
  Report Type: 
  Country: None (occurrence: None)
  Receive Date: 20110523
  Receipt Date: 20110516
  Transmission Date: 20111010
  Serious: Yes (Other)
  Sender: FDA-Public Use
  Company Number: US-ASTRAZENECA-2009UW21064

PATIENT
  Age: 586 Month
  Sex: Male
  Weight: 90.7 kg

DRUGS (15)
  1. SEROQUEL [Suspect]
     Dosage: 400-600 MG AT BEDTIME
     Route: 048
     Dates: start: 20040101
  2. PAXIL [Concomitant]
     Indication: DEPRESSION
     Dates: start: 19970101
  3. ABILIFY [Concomitant]
     Dates: start: 19970101
  4. CLOZARIL [Concomitant]
     Dates: start: 19970101
  5. ZOLOFT [Concomitant]
     Dates: start: 20011210
  6. ZOLOFT [Concomitant]
     Dosage: 50 MG EVERY AFTERNOON
     Route: 048
  7. SEROQUEL [Suspect]
     Indication: INSOMNIA
     Route: 048
     Dates: start: 19970101
  8. WELLBUTRIN SR [Concomitant]
     Dates: start: 20020304
  9. ZOLOFT [Concomitant]
     Route: 048
  10. LEXAPRO [Concomitant]
     Dates: start: 20040101
  11. PRILOSEC [Concomitant]
     Dosage: 40 TAKE 1 CAPSULE EVERY DAY
     Dates: start: 20020215
  12. ATACAND [Concomitant]
     Dates: start: 20011019
  13. SEROQUEL [Suspect]
     Dosage: 25 MG TAKE 1 TABLET AT BEDTIME OR 2 TABLETS AT BEDTIME AS NEEDED
     Route: 048
     Dates: start: 20011211
  14. TRAZODONE HCL [Concomitant]
     Dosage: 150 MG 1/2 TO 1 EVERY NIGHT
     Route: 048
  15. KLONOPIN [Concomitant]
     Dosage: 0.5 MG TAKE 3 TABLETS AT BED TIME AS NEEDED
     Dates: start: 20020304

REACTIONS (8)
  - ANXIETY [None]
  - OESOPHAGITIS [None]
  - BLOOD TRIGLYCERIDES INCREASED [None]
  - BACK INJURY [None]
  - CHEST PAIN [None]
  - MYOCARDIAL INFARCTION [None]
  - TYPE 2 DIABETES MELLITUS [None]
  - NERVOUSNESS [None]
